FAERS Safety Report 6986821-X (Version None)
Quarter: 2010Q3

REPORT INFORMATION
  Report Type: 
  Country: None (occurrence: None)
  Receive Date: 20100915
  Receipt Date: 20090804
  Transmission Date: 20110219
  Serious: No
  Sender: FDA-Public Use
  Company Number: US-WYE-H10445009

PATIENT
  Sex: Female
  Weight: 158.9 kg

DRUGS (5)
  1. PRISTIQ [Suspect]
     Indication: ANXIETY
     Route: 048
     Dates: start: 20090720, end: 20090803
  2. PRISTIQ [Suspect]
     Indication: NERVOUSNESS
  3. SYMBICORT [Concomitant]
  4. PROAIR HFA [Concomitant]
  5. CARVEDILOL [Concomitant]

REACTIONS (2)
  - HALLUCINATION, TACTILE [None]
  - NIGHTMARE [None]
